FAERS Safety Report 15590606 (Version 2)
Quarter: 2018Q4

REPORT INFORMATION
  Report Type: Spontaneous
  Country: CA (occurrence: CA)
  Receive Date: 20181106
  Receipt Date: 20181205
  Transmission Date: 20190205
  Serious: Yes (Death, Other)
  Sender: FDA-Public Use
  Company Number: CA-PFIZER INC-2018452140

PATIENT
  Age: 68 Year
  Sex: Female

DRUGS (1)
  1. IBRANCE [Suspect]
     Active Substance: PALBOCICLIB
     Indication: BREAST CANCER
     Dosage: 125 MG, CYCLIC (21 DAYS ON, 7 DAYS OFF)

REACTIONS (13)
  - Meningioma [Unknown]
  - Pulmonary embolism [Unknown]
  - Dyspnoea [Unknown]
  - Bradycardia [Unknown]
  - Sternal fracture [Unknown]
  - Neoplasm progression [Unknown]
  - Hypoxia [Unknown]
  - Pathological fracture [Unknown]
  - Arthralgia [Unknown]
  - Fat embolism [Fatal]
  - Cardiac arrest [Unknown]
  - Fatigue [Unknown]
  - Rib fracture [Unknown]

NARRATIVE: CASE EVENT DATE: 2018
